FAERS Safety Report 16072941 (Version 2)
Quarter: 2019Q1

REPORT INFORMATION
  Report Type: Spontaneous
  Country: JP (occurrence: JP)
  Receive Date: 20190314
  Receipt Date: 20190322
  Transmission Date: 20190418
  Serious: Yes (Hospitalization, Other)
  Sender: FDA-Public Use
  Company Number: JP-MTPC-MTPC2019-0039311

PATIENT

DRUGS (7)
  1. GRTPA INJ. 6 MIU [Suspect]
     Active Substance: ALTEPLASE
     Indication: EMBOLIC STROKE
     Dosage: 39.4 MILLILITER, QD
     Route: 041
     Dates: start: 20190118, end: 20190118
  2. NICARDIPINE HYDROCHLORIDE. [Concomitant]
     Active Substance: NICARDIPINE HYDROCHLORIDE
     Indication: HYPERTENSION
     Dosage: 1 MILLIGRAM, Q1HR
     Route: 041
     Dates: start: 20190118
  3. NORVASC [Concomitant]
     Active Substance: AMLODIPINE BESYLATE
     Route: 065
  4. OMEPRAZON TABLETS 10MG [Suspect]
     Active Substance: OMEPRAZOLE
     Indication: PROPHYLAXIS AGAINST GASTROINTESTINAL ULCER
     Dosage: 20 MILLIGRAM, QD
     Route: 048
  5. RADICUT BAG FOR I.V. INFUSION 30MG [Suspect]
     Active Substance: EDARAVONE
     Indication: EMBOLIC STROKE
     Dosage: 30 MILLIGRAM, BID
     Route: 041
     Dates: start: 20190118, end: 20190125
  6. AZILVA [Concomitant]
     Active Substance: AZILSARTAN KAMEDOXOMIL
     Route: 065
  7. SOLYUGEN F [Concomitant]
     Dosage: 500 MILLILITER, QD
     Route: 042

REACTIONS (3)
  - Vitreous haemorrhage [Recovering/Resolving]
  - Choroidal haemorrhage [Recovering/Resolving]
  - Blindness unilateral [Unknown]

NARRATIVE: CASE EVENT DATE: 201901
